FAERS Safety Report 9155810 (Version 5)
Quarter: 2014Q1

REPORT INFORMATION
  Report Type: Spontaneous
  Country: US (occurrence: US)
  Receive Date: 20130311
  Receipt Date: 20140320
  Transmission Date: 20141002
  Serious: Yes (Hospitalization, Other)
  Sender: FDA-Public Use
  Company Number: US-009507513-1303USA003896

PATIENT
  Sex: Male

DRUGS (6)
  1. FOSAMAX [Suspect]
     Indication: BONE LOSS
     Dosage: 70 MG, QW
     Route: 048
     Dates: start: 20031001
  2. VITAMINS (UNSPECIFIED) [Concomitant]
     Dosage: UNK
     Dates: start: 1985
  3. OXYBUTYNIN CHLORIDE [Concomitant]
     Indication: INCONTINENCE
     Dosage: UNK
     Dates: start: 2002
  4. HYDROCODONE [Concomitant]
     Indication: PAIN
     Dosage: UNK
     Dates: start: 2002
  5. VALIUM [Concomitant]
     Indication: ANXIETY
     Dosage: UNK
     Dates: start: 2002
  6. BACLOFEN [Concomitant]
     Indication: MUSCLE SPASMS
     Dosage: UNK
     Dates: start: 2002

REACTIONS (19)
  - Infection [Unknown]
  - Atypical femur fracture [Unknown]
  - Low turnover osteopathy [Unknown]
  - Ankle fracture [Unknown]
  - Thermal burn [Unknown]
  - Urinary tract infection [Not Recovered/Not Resolved]
  - Acquired syringomyelia [Unknown]
  - Melanocytic naevus [Unknown]
  - Onychomycosis [Unknown]
  - Lumbar radiculopathy [Not Recovered/Not Resolved]
  - Anxiety [Not Recovered/Not Resolved]
  - Post-traumatic stress disorder [Not Recovered/Not Resolved]
  - Calculus bladder [Unknown]
  - Localised infection [Unknown]
  - Osteoarthritis [Not Recovered/Not Resolved]
  - Osteoarthritis [Unknown]
  - Osteopenia [Unknown]
  - Alopecia [Unknown]
  - Neck pain [Unknown]
